FAERS Safety Report 7211317-X (Version None)
Quarter: 2011Q1

REPORT INFORMATION
  Report Type: 
  Country: None (occurrence: None)
  Receive Date: 20110105
  Receipt Date: 20101216
  Transmission Date: 20110831
  Serious: No
  Sender: FDA-Public Use
  Company Number: US-B.I. PHARMACEUTICALS,INC./RIDGEFIELD-2010-BP-14716BP

PATIENT
  Age: 77 Year
  Sex: Female

DRUGS (4)
  1. VERAPAMIL [Concomitant]
     Indication: ATRIAL FIBRILLATION
     Route: 048
     Dates: start: 20080101
  2. POTASSIUM [Concomitant]
     Indication: FLUID RETENTION
     Route: 048
     Dates: start: 20070101
  3. PRADAXA [Suspect]
     Indication: ATRIAL FIBRILLATION
     Dosage: 300 MG
     Route: 048
     Dates: start: 20101120
  4. FUROSEMIDE [Concomitant]
     Indication: FLUID RETENTION
     Dates: start: 20070101

REACTIONS (8)
  - ABDOMINAL PAIN UPPER [None]
  - DIZZINESS [None]
  - DYSPEPSIA [None]
  - HAEMORRHOIDAL HAEMORRHAGE [None]
  - NAUSEA [None]
  - FLATULENCE [None]
  - FATIGUE [None]
  - ASTHENIA [None]
